FAERS Safety Report 4959620-8 (Version None)
Quarter: 2006Q1

REPORT INFORMATION
  Report Type: 
  Country: None (occurrence: None)
  Receive Date: 20060331
  Receipt Date: 20050928
  Transmission Date: 20060701
  Serious: Yes (Hospitalization, Disabling)
  Sender: FDA-Public Use
  Company Number: US-ROCHE-419589

PATIENT
  Age: 16 Year
  Sex: Male
  Weight: 83.9 kg

DRUGS (2)
  1. ACCUTANE [Suspect]
     Indication: ACNE
     Route: 048
     Dates: start: 19911215, end: 19920315
  2. ADVIL [Concomitant]
     Dosage: TAKEN OCCASIONALLY FROM 10 YEARS PRIOR TO ALLEGED ISOTRETINOIN INJURIES THOUGH TO THE PRESENT.

REACTIONS (27)
  - ALANINE AMINOTRANSFERASE INCREASED [None]
  - ANHEDONIA [None]
  - ANXIETY [None]
  - ARTHRITIS [None]
  - ASPARTATE AMINOTRANSFERASE INCREASED [None]
  - BLOOD ALBUMIN DECREASED [None]
  - BLOOD ALKALINE PHOSPHATASE INCREASED [None]
  - BLOOD BILIRUBIN INCREASED [None]
  - BLOOD CHLORIDE DECREASED [None]
  - BLOOD GLUCOSE INCREASED [None]
  - BLOOD SODIUM DECREASED [None]
  - CLAVICLE FRACTURE [None]
  - COLITIS ULCERATIVE [None]
  - CROHN'S DISEASE [None]
  - GASTROINTESTINAL DISORDER [None]
  - HAEMATOCRIT DECREASED [None]
  - HAEMOGLOBIN DECREASED [None]
  - HYPERTENSION [None]
  - INFLAMMATORY BOWEL DISEASE [None]
  - INTESTINAL HAEMORRHAGE [None]
  - IRRITABLE BOWEL SYNDROME [None]
  - LYMPHOCYTE COUNT INCREASED [None]
  - MULTI-ORGAN DISORDER [None]
  - NEUTROPHIL COUNT INCREASED [None]
  - PLATELET COUNT INCREASED [None]
  - URINARY TRACT INFECTION [None]
  - WEIGHT DECREASED [None]
